FAERS Safety Report 7580886-2 (Version None)
Quarter: 2011Q2

REPORT INFORMATION
  Report Type: 
  Country: None (occurrence: None)
  Receive Date: 20110629
  Receipt Date: 20110614
  Transmission Date: 20111010
  Serious: Yes (Death, Hospitalization, Congenital Anomaly, Other)
  Sender: FDA-Public Use
  Company Number: GB-WATSON-2011-08650

PATIENT
  Age: 32 Week
  Sex: Male

DRUGS (3)
  1. CANDESARTAN CILEXETIL [Suspect]
     Indication: HYPERTENSION
     Dosage: UNK
     Route: 064
  2. BECLOMETHASONE DIPROPIONATE [Suspect]
     Indication: PRODUCT USED FOR UNKNOWN INDICATION
     Dosage: UNK
     Route: 064
  3. ALBUTEROL [Suspect]
     Indication: ASTHMA
     Route: 064

REACTIONS (12)
  - MULTIPLE CONGENITAL ABNORMALITIES [None]
  - HYPOTENSION [None]
  - JOINT CONTRACTURE [None]
  - CONGENITAL MUSCULOSKELETAL ANOMALY [None]
  - CONGENITAL ANOMALY [None]
  - HYPOSPADIAS [None]
  - DRUG EXPOSURE DURING PREGNANCY [None]
  - GROWTH RETARDATION [None]
  - CONGENITAL BLADDER ANOMALY [None]
  - SINGLE FUNCTIONAL KIDNEY [None]
  - ELECTROCARDIOGRAM ABNORMAL [None]
  - KIDNEY ENLARGEMENT [None]
